FAERS Safety Report 19176438 (Version 2)
Quarter: 2021Q2

REPORT INFORMATION
  Report Type: Spontaneous
  Country: BR (occurrence: BR)
  Receive Date: 20210423
  Receipt Date: 20210507
  Transmission Date: 20210717
  Serious: Yes (Other)
  Sender: FDA-Public Use
  Company Number: BR-ORGANON-O2104BRA001920

PATIENT
  Sex: Male

DRUGS (1)
  1. IMPLANON NXT [Suspect]
     Active Substance: ETONOGESTREL
     Dosage: UNK
     Route: 063

REACTIONS (3)
  - Milk allergy [Unknown]
  - Haematochezia [Unknown]
  - Exposure via breast milk [Unknown]
